FAERS Safety Report 17292795 (Version 2)
Quarter: 2020Q1

REPORT INFORMATION
  Report Type: Spontaneous
  Country: NO (occurrence: NO)
  Receive Date: 20200121
  Receipt Date: 20200122
  Transmission Date: 20200409
  Serious: Yes (Hospitalization, Other)
  Sender: FDA-Public Use
  Company Number: NO-BAYER-2019-226172

PATIENT

DRUGS (2)
  1. LAMICTAL [Interacting]
     Active Substance: LAMOTRIGINE
     Indication: EPILEPSY
     Dosage: UNK
  2. CIPROXIN [Suspect]
     Active Substance: CIPROFLOXACIN
     Indication: CHLAMYDIAL INFECTION
     Dosage: UNK

REACTIONS (8)
  - Psychotic disorder [None]
  - Panic attack [Not Recovered/Not Resolved]
  - Epilepsy [None]
  - Drug interaction [None]
  - Anxiety [None]
  - Depression [Not Recovered/Not Resolved]
  - Hallucination [None]
  - Stress [None]

NARRATIVE: CASE EVENT DATE: 20161124
